FAERS Safety Report 14057946 (Version 3)
Quarter: 2017Q4

REPORT INFORMATION
  Report Type: Spontaneous
  Country: NL (occurrence: NL)
  Receive Date: 20171006
  Receipt Date: 20171013
  Transmission Date: 20180321
  Serious: Yes (Other)
  Sender: FDA-Public Use
  Company Number: NL-ABBVIE-17P-114-2123807-00

PATIENT
  Sex: Male

DRUGS (1)
  1. DEPAKINE [Suspect]
     Active Substance: VALPROATE SODIUM
     Indication: MATERNAL EXPOSURE TIMING UNSPECIFIED
     Route: 064

REACTIONS (6)
  - Attention deficit/hyperactivity disorder [Unknown]
  - Developmental delay [Unknown]
  - Autism spectrum disorder [Unknown]
  - Meningitis bacterial [Unknown]
  - Foetal exposure during pregnancy [Unknown]
  - Abnormal behaviour [Unknown]
